FAERS Safety Report 6172599-9 (Version None)
Quarter: 2009Q2

REPORT INFORMATION
  Report Type: 
  Country: None (occurrence: None)
  Receive Date: 20090428
  Receipt Date: 20090416
  Transmission Date: 20091009
  Serious: Yes (Hospitalization)
  Sender: FDA-Public Use
  Company Number: 234186K09USA

PATIENT
  Age: 55 Year
  Sex: Female

DRUGS (9)
  1. REBIF [Suspect]
     Indication: MULTIPLE SCLEROSIS
     Dosage: 44 MCG, 3 IN 1 WEEKS, SUBCUTANEOUS
     Route: 058
     Dates: start: 20081202
  2. ENABLEX (DARIFENACIN) [Concomitant]
  3. PROVIGIL [Concomitant]
  4. DARVOCET [Concomitant]
  5. PROTONIX [Concomitant]
  6. XANAX [Concomitant]
  7. LIPITOR [Concomitant]
  8. ZOLOFT [Concomitant]
  9. ZANAFLEX [Concomitant]

REACTIONS (5)
  - ESCHERICHIA INFECTION [None]
  - HAEMATOCRIT DECREASED [None]
  - PLATELET COUNT DECREASED [None]
  - URINARY TRACT INFECTION [None]
  - WHITE BLOOD CELL COUNT DECREASED [None]
